FAERS Safety Report 18776329 (Version 1)
Quarter: 2021Q1

REPORT INFORMATION
  Report Type: Spontaneous
  Country: DE (occurrence: DE)
  Receive Date: 20210122
  Receipt Date: 20210122
  Transmission Date: 20210419
  Serious: Yes (Hospitalization)
  Sender: FDA-Public Use
  Company Number: DE-MYLANLABS-2021M1003278

PATIENT
  Age: 87 Year
  Sex: Female

DRUGS (17)
  1. TORASEMID [Concomitant]
     Active Substance: TORSEMIDE
     Dosage: 10 MG, 1?0?0?0, TABLETTEN
  2. LAXOBERAL [Concomitant]
     Active Substance: SODIUM PICOSULFATE
     Dosage: BEDARF, TROPFEN
  3. APIXABAN [Concomitant]
     Active Substance: APIXABAN
     Dosage: 2.5 MG, 1?0?1?0, TABLETTEN
  4. MACROGOL [Concomitant]
     Active Substance: POLYETHYLENE GLYCOLS
     Dosage: 10 G, 1?0?0?0, PULVER
  5. FENTANYL. [Suspect]
     Active Substance: FENTANYL
     Indication: PRODUCT USED FOR UNKNOWN INDICATION
     Dosage: 0.025 ?G/H, WECHSEL ALLE 3 TAGE, PFLASTER TRANSDERMAL, MEDIKATIONSFEHLER
     Route: 062
  6. CITALOPRAM [Suspect]
     Active Substance: CITALOPRAM HYDROBROMIDE
     Indication: PRODUCT USED FOR UNKNOWN INDICATION
     Dosage: 20 MG, 0.5?0?0?0, TABLETTEN
  7. MIRABEGRON [Suspect]
     Active Substance: MIRABEGRON
     Indication: PRODUCT USED FOR UNKNOWN INDICATION
     Dosage: 50 MG, 1?0?0?0, RETARD?TABLETTEN
  8. ALLOPURINOL. [Concomitant]
     Active Substance: ALLOPURINOL
     Dosage: 300 MG, 0.5?0?0?0, TABLETTEN
  9. SPIRONOLACTONE. [Concomitant]
     Active Substance: SPIRONOLACTONE
     Dosage: 50 MG, 1?0?0?0, TABLETTEN
  10. PANTOPRAZOL                        /01263201/ [Concomitant]
     Active Substance: PANTOPRAZOLE
     Dosage: 40 MG, 1?0?0?0, TABLETTEN
  11. LACTULOSE. [Concomitant]
     Active Substance: LACTULOSE
     Dosage: 10 ML, 1?0?1?0, SYRUP
  12. ALENDRONSAEURE [Concomitant]
     Active Substance: ALENDRONATE SODIUM
     Dosage: 70 MG / WOCHE, SAMSTAGS, TABLETTEN
  13. VIANI [Concomitant]
     Active Substance: FLUTICASONE PROPIONATE\SALMETEROL XINAFOATE
     Dosage: 250|50 ?G, 1?0?1?0, TABLETTEN
  14. METAMIZOL                          /06276701/ [Concomitant]
     Active Substance: METAMIZOLE
     Dosage: 30?30?30?30, TROPFEN
  15. FENOTEROL W/IPRATROPIUM BROMIDE [Concomitant]
     Dosage: 0.5|0.25 MG/ML, 20?20?20?0, INHALATIONSL?SUNG
     Route: 055
  16. CARBAMAZEPINE. [Suspect]
     Active Substance: CARBAMAZEPINE
     Indication: PRODUCT USED FOR UNKNOWN INDICATION
     Dosage: 200 MG, 1?0?1?0, TABLETTEN, MEDIKATIONSFEHLER
  17. CALCIMED D3 [Concomitant]
     Active Substance: CALCIUM CARBONATE\CHOLECALCIFEROL
     Dosage: 500|1000 MG/IIE, 1?0?0?0, KAUTABLETTEN

REACTIONS (6)
  - Fracture [Unknown]
  - Product administration error [Unknown]
  - Product prescribing error [Unknown]
  - Arthralgia [Unknown]
  - Nausea [Unknown]
  - Fall [Unknown]
